FAERS Safety Report 7774200-7 (Version None)
Quarter: 2011Q3

REPORT INFORMATION
  Report Type: 
  Country: None (occurrence: None)
  Receive Date: 20110923
  Receipt Date: 20110912
  Transmission Date: 20111222
  Serious: Yes (Hospitalization)
  Sender: FDA-Public Use
  Company Number: JP-SANOFI-AVENTIS-2011SA045566

PATIENT
  Age: 60 Year
  Sex: Female
  Weight: 75 kg

DRUGS (10)
  1. RHEUMATREX [Concomitant]
     Indication: RHEUMATOID ARTHRITIS
     Dosage: IT WAS STARTED BEFORE THE ADMINISTRATION OF LEFLUNOMIDE.
     Route: 048
     Dates: end: 20101101
  2. RHEUMATREX [Concomitant]
     Route: 048
     Dates: start: 20101102, end: 20110110
  3. PREDNISOLONE [Concomitant]
     Route: 048
     Dates: start: 20110512
  4. REBAMIPIDE [Concomitant]
     Indication: RHEUMATOID ARTHRITIS
     Dosage: IT WAS STARTED BEFORE THE ADMINISTRATION OF LEFLUNOMIDE.
     Route: 048
     Dates: end: 20110110
  5. PREDNISOLONE [Concomitant]
     Indication: RHEUMATOID ARTHRITIS
     Dates: start: 20110804
  6. ARAVA [Suspect]
     Indication: RHEUMATOID ARTHRITIS
     Route: 048
     Dates: start: 20101005, end: 20110110
  7. CELECOXIB [Concomitant]
     Indication: RHEUMATOID ARTHRITIS
     Dosage: IT WAS STARTED BEFORE THE ADMINISTRATION OF LEFLUNOMIDE.
     Route: 048
     Dates: end: 20110110
  8. VOLTAREN [Concomitant]
     Indication: RHEUMATOID ARTHRITIS
     Dosage: IT WAS STARTED BEFORE THE ADMINISTRATION OF LEFLUNOMIDE.TAPE
     Route: 062
     Dates: end: 20110110
  9. FOLIC ACID [Concomitant]
     Indication: PROPHYLAXIS
     Dosage: IT WAS STARTED BEFORE THE ADMINISTRATION OF LEFLUNOMIDE.
     Route: 048
     Dates: end: 20110110
  10. PREDNISOLONE [Concomitant]
     Route: 048

REACTIONS (2)
  - RHEUMATOID ARTHRITIS [None]
  - HEPATITIS B [None]
